FAERS Safety Report 17063400 (Version 1)
Quarter: 2019Q4

REPORT INFORMATION
  Report Type: Spontaneous
  Country: US (occurrence: US)
  Receive Date: 20191122
  Receipt Date: 20191122
  Transmission Date: 20200122
  Serious: Yes (Other)
  Sender: FDA-Public Use
  Company Number: US-ZYDUS-043303

PATIENT
  Age: 13 Year
  Sex: Female

DRUGS (1)
  1. METHYLPREDNISOLONE. [Suspect]
     Active Substance: METHYLPREDNISOLONE
     Indication: PROPHYLAXIS
     Route: 042

REACTIONS (4)
  - Suicidal ideation [Unknown]
  - Psychotic disorder [Unknown]
  - Anxiety [Unknown]
  - Hyperglycaemia [Unknown]
